FAERS Safety Report 4965653-8 (Version None)
Quarter: 2006Q1

REPORT INFORMATION
  Report Type: 
  Country: None (occurrence: None)
  Receive Date: 20060201
  Receipt Date: 20051129
  Transmission Date: 20060701
  Serious: No
  Sender: FDA-Public Use
  Company Number: 2005PV005028

PATIENT
  Age: 68 Year
  Sex: Female
  Weight: 113.3993 kg

DRUGS (4)
  1. BYETTA [Suspect]
     Indication: DIABETES MELLITUS NON-INSULIN-DEPENDENT
     Dosage: 5 MCG;BID;SC
     Route: 058
     Dates: start: 20051109
  2. METFORMIN [Concomitant]
  3. ACTOS [Concomitant]
  4. PRANDIN [Concomitant]

REACTIONS (3)
  - RESPIRATORY TRACT CONGESTION [None]
  - SINUS CONGESTION [None]
  - WEIGHT DECREASED [None]
